FAERS Safety Report 5723479-1 (Version None)
Quarter: 2008Q2

REPORT INFORMATION
  Report Type: 
  Country: None (occurrence: None)
  Receive Date: 20080425
  Receipt Date: 20080421
  Transmission Date: 20081010
  Serious: Yes (Hospitalization)
  Sender: FDA-Public Use
  Company Number: LTI2008A00114

PATIENT
  Sex: Male

DRUGS (1)
  1. ACTOS [Suspect]
     Indication: TYPE 2 DIABETES MELLITUS
     Dosage: (1 IN 1 D) ORAL
     Route: 048
     Dates: start: 20040101, end: 20080101

REACTIONS (3)
  - ASCITES [None]
  - HEPATIC CIRRHOSIS [None]
  - OEDEMA PERIPHERAL [None]
